FAERS Safety Report 17957916 (Version 1)
Quarter: 2020Q2

REPORT INFORMATION
  Report Type: Spontaneous
  Country: US (occurrence: US)
  Receive Date: 20200629
  Receipt Date: 20200629
  Transmission Date: 20200714
  Serious: No
  Sender: FDA-Public Use
  Company Number: US-SA-2020SA165128

PATIENT

DRUGS (8)
  1. DUPIXENT [Suspect]
     Active Substance: DUPILUMAB
     Dosage: 300 MG, QOW
     Route: 058
     Dates: start: 2020
  2. ATORVASTATIN [Concomitant]
     Active Substance: ATORVASTATIN
  3. CALCITRIOL. [Concomitant]
     Active Substance: CALCITRIOL
  4. DUPIXENT [Suspect]
     Active Substance: DUPILUMAB
     Indication: DERMATITIS ATOPIC
     Dosage: 600 MG, 1X
     Route: 058
     Dates: start: 20200530, end: 20200530
  5. NOVOLOG [Concomitant]
     Active Substance: INSULIN ASPART
  6. VITAMIN D3 [Concomitant]
     Active Substance: CHOLECALCIFEROL
  7. IRON [Concomitant]
     Active Substance: IRON
  8. SPRINTEC [Concomitant]
     Active Substance: ETHINYL ESTRADIOL\NORGESTIMATE

REACTIONS (1)
  - Dermatitis atopic [Not Recovered/Not Resolved]

NARRATIVE: CASE EVENT DATE: 20200622
